FAERS Safety Report 6607043-8 (Version None)
Quarter: 2010Q1

REPORT INFORMATION
  Report Type: 
  Country: None (occurrence: None)
  Receive Date: 20100219
  Receipt Date: 20100204
  Transmission Date: 20100710
  Serious: Yes (Hospitalization, Other)
  Sender: FDA-Public Use
  Company Number: AUR-APL-2010-00365

PATIENT
  Age: 69 Year
  Sex: Female

DRUGS (7)
  1. LISINOPRIL [Suspect]
     Dosage: 10MG, DAILY, ORAL
     Route: 048
  2. OLANZAPINE [Suspect]
     Dosage: 10MG, DAILY, ORAL
     Route: 048
  3. LITHIUM CARBONATE [Concomitant]
  4. WARFARIN SODIUM [Concomitant]
  5. LEVOTHYROXINE SODIUM [Concomitant]
  6. ALPRAZOLAM [Concomitant]
  7. DARIFENACIN HYDROBROMIDE [Concomitant]

REACTIONS (1)
  - PANCREATITIS ACUTE [None]
